FAERS Safety Report 10518559 (Version 2)
Quarter: 2014Q4

REPORT INFORMATION
  Report Type: Spontaneous
  Country: US (occurrence: US)
  Receive Date: 20141015
  Receipt Date: 20141015
  Transmission Date: 20150528
  Serious: Yes (Other)
  Sender: FDA-Public Use
  Company Number: US-LEO PHARMA-221375

PATIENT
  Age: 71 Year
  Sex: Female

DRUGS (1)
  1. PICATO [Suspect]
     Active Substance: INGENOL MEBUTATE
     Indication: PRODUCT USED FOR UNKNOWN INDICATION
     Dosage: TOTAL OF 2 TUBES AT 6 PM
     Dates: start: 201304

REACTIONS (10)
  - Drug administration error [Recovered/Resolved]
  - Chest discomfort [Recovered/Resolved]
  - Swollen tongue [Recovered/Resolved]
  - Accidental overdose [Recovered/Resolved]
  - Dyspnoea [Recovered/Resolved]
  - Lip swelling [Recovered/Resolved]
  - Hypoaesthesia oral [Recovered/Resolved]
  - Application site vesicles [Recovered/Resolved]
  - Swelling face [Recovered/Resolved]
  - Application site erythema [Recovered/Resolved]
